FAERS Safety Report 9237942 (Version 1)
Quarter: 2013Q1

REPORT INFORMATION
  Report Type: Spontaneous
  Country: US (occurrence: None)
  Receive Date: 20121107
  Receipt Date: 20121107
  Transmission Date: 20140127
  Serious: No
  Sender: FDA-Public Use
  Company Number: 2012HGS-003759

PATIENT
  Age: 50 Year
  Sex: Female
  Weight: 82.1 kg

DRUGS (6)
  1. BENLYSTA [Suspect]
     Indication: SYSTEMIC LUPUS ERYTHEMATOSUS
     Dosage: 1 IN 28 D, INTRAVENOUS DRIP
     Route: 041
     Dates: start: 20120521
  2. NPLATE(ROMIPLOSTIM) (ROMIPLOSTIM) [Concomitant]
  3. MULTIVITAMIN(VIGRAN) (ERGOCALCIFEROL, ASCORBIC ACID, PYRIDOXINE HYDROCHLORIDE, THIAMINE HYDROCHLORIDE, RETINOL, RIBOFLAVIN, NICOTINAMIDE, CALCIUM PANTOTHENATE) [Concomitant]
  4. CALCIUM WITH VITAMIN D(LEKOVIT CA) (COLECALCIFEROL, CALCIUM CARBONATE) [Concomitant]
  5. REFRESH LIQUIGEL(CARMELLOSE SODIUM) (CARMELLOSE SODIUM) [Concomitant]
  6. ROYAL JELLY(ROYAL JELLY) (ROYAL JELLY) [Concomitant]

REACTIONS (4)
  - Fatigue [None]
  - Sluggishness [None]
  - Depression [None]
  - Irritability [None]
